FAERS Safety Report 6203191-5 (Version None)
Quarter: 2009Q2

REPORT INFORMATION
  Report Type: 
  Country: None (occurrence: None)
  Receive Date: 20090527
  Receipt Date: 20090520
  Transmission Date: 20091009
  Serious: Yes (Hospitalization)
  Sender: FDA-Public Use
  Company Number: US-BAYER-200921479NA

PATIENT
  Age: 20 Year
  Sex: Female

DRUGS (1)
  1. MIRENA [Suspect]
     Indication: CONTRACEPTION
     Dosage: CONTINUOUS
     Route: 015
     Dates: start: 20080104, end: 20090515

REACTIONS (3)
  - ABDOMINAL PAIN LOWER [None]
  - ECTOPIC PREGNANCY WITH INTRAUTERINE DEVICE [None]
  - VAGINAL HAEMORRHAGE [None]
